FAERS Safety Report 12183181 (Version 1)
Quarter: 2016Q1

REPORT INFORMATION
  Report Type: Spontaneous
  Country: US (occurrence: None)
  Receive Date: 20160315
  Receipt Date: 20160315
  Transmission Date: 20160526
  Serious: Yes (Hospitalization)
  Sender: FDA-Public Use
  Company Number: None

PATIENT
  Age: 84 Year
  Sex: Female

DRUGS (1)
  1. SILDENAFIL 20 MG GREENSTONE [Suspect]
     Active Substance: SILDENAFIL
     Indication: COR PULMONALE CHRONIC
     Route: 048
     Dates: start: 20120606

REACTIONS (1)
  - Hospitalisation [None]

NARRATIVE: CASE EVENT DATE: 201603
